FAERS Safety Report 8269751-5 (Version None)
Quarter: 2012Q2

REPORT INFORMATION
  Report Type: 
  Country: None (occurrence: None)
  Receive Date: 20120406
  Receipt Date: 20120404
  Transmission Date: 20120825
  Serious: Yes (Death, Hospitalization, Other)
  Sender: FDA-Public Use
  Company Number: ADR-2011-10978

PATIENT
  Sex: Female

DRUGS (1)
  1. LIORESAL [Suspect]
     Indication: MUSCLE SPASTICITY
     Dosage: 290.42 MCG, DAILY, INTR
     Route: 037

REACTIONS (5)
  - IMPLANT SITE INFECTION [None]
  - PNEUMONIA [None]
  - INCISION SITE COMPLICATION [None]
  - MENINGITIS [None]
  - PYREXIA [None]
